FAERS Safety Report 7435903-7 (Version None)
Quarter: 2011Q2

REPORT INFORMATION
  Report Type: 
  Country: None (occurrence: None)
  Receive Date: 20110425
  Receipt Date: 20110218
  Transmission Date: 20111010
  Serious: Yes (Other)
  Sender: FDA-Public Use
  Company Number: PHHY2011IT13681

PATIENT
  Sex: Female

DRUGS (1)
  1. AFINITOR [Suspect]
     Indication: RENAL CANCER
     Dosage: 10 MG, DAILY
     Route: 048
     Dates: start: 20101116, end: 20101231

REACTIONS (4)
  - DERMATITIS BULLOUS [None]
  - ERYTHEMA [None]
  - PRURITUS [None]
  - RASH PAPULAR [None]
